FAERS Safety Report 14901322 (Version 1)
Quarter: 2018Q2

REPORT INFORMATION
  Report Type: Spontaneous
  Country: US (occurrence: US)
  Receive Date: 20180516
  Receipt Date: 20180516
  Transmission Date: 20180711
  Serious: Yes (Other)
  Sender: FDA-Public Use
  Company Number: US-SAOL THERAPEUTICS-2018SAO00725

PATIENT
  Age: 13 Year
  Sex: Female

DRUGS (1)
  1. LIORESAL [Suspect]
     Active Substance: BACLOFEN
     Indication: CEREBRAL PALSY
     Dosage: 250 ?G, \DAY
     Route: 037

REACTIONS (7)
  - Irritability [Recovered/Resolved]
  - Muscle spasticity [Recovered/Resolved]
  - Muscle spasms [Recovered/Resolved]
  - Device damage [Recovered/Resolved]
  - Spinal operation [Unknown]
  - Pruritus [Recovered/Resolved]
  - Complication associated with device [Recovered/Resolved]

NARRATIVE: CASE EVENT DATE: 20180212
